FAERS Safety Report 8501025-7 (Version None)
Quarter: 2012Q2

REPORT INFORMATION
  Report Type: 
  Country: None (occurrence: None)
  Receive Date: 20120405
  Receipt Date: 20110215
  Transmission Date: 20120825
  Serious: Yes (Other)
  Sender: FDA-Public Use
  Company Number: PHHY2011US12591

PATIENT

DRUGS (1)
  1. RECLAST [Suspect]
     Dosage: , INFUSION
     Dates: start: 20100824

REACTIONS (1)
  - RENAL FAILURE [None]
